FAERS Safety Report 7712164-2 (Version None)
Quarter: 2011Q3

REPORT INFORMATION
  Report Type: 
  Country: None (occurrence: None)
  Receive Date: 20110826
  Receipt Date: 20110819
  Transmission Date: 20111222
  Serious: Yes (Hospitalization)
  Sender: FDA-Public Use
  Company Number: FR-TEVA-286820ISR

PATIENT
  Sex: Male
  Weight: 64.2 kg

DRUGS (12)
  1. ASPIRIN [Concomitant]
     Indication: THROMBOSIS PROPHYLAXIS
     Dosage: 160 MILLIGRAM;
     Route: 048
     Dates: start: 20100106
  2. OMEPRAZOLE [Concomitant]
     Indication: PROPHYLAXIS
     Dosage: 10 MILLIGRAM;
     Route: 048
     Dates: start: 20100428
  3. DEXAMETHASONE [Suspect]
     Dates: start: 20110529, end: 20110530
  4. EUPRESSYL [Concomitant]
     Indication: HYPERTENSION
     Dosage: 240 MILLIGRAM;
     Route: 048
     Dates: start: 20091219
  5. CALCIDIA [Concomitant]
     Indication: HYPOCALCAEMIA
     Dosage: 4 DOSAGE FORMS;
     Route: 048
     Dates: start: 20100428
  6. AMOXICILLIN [Concomitant]
     Indication: BRONCHITIS
     Dosage: 2 GRAM;
     Route: 048
     Dates: start: 20110509, end: 20110519
  7. DEXAMETHASONE [Suspect]
     Indication: MULTIPLE MYELOMA
     Route: 048
     Dates: start: 20100106
  8. LENALIDOMIDE [Suspect]
     Indication: MULTIPLE MYELOMA
     Dosage: 10 MILLIGRAM;
     Route: 048
     Dates: start: 20100106
  9. LENALIDOMIDE [Suspect]
     Dosage: 10 MILLIGRAM;
     Route: 048
     Dates: start: 20110429, end: 20110524
  10. CORDARONE [Concomitant]
     Indication: ATRIAL FIBRILLATION
     Dosage: 1 TABLET;
     Route: 048
     Dates: start: 20091219
  11. IMOVANE [Concomitant]
     Indication: INSOMNIA
     Route: 048
     Dates: start: 20091204
  12. FORLAX [Concomitant]
     Indication: CONSTIPATION PROPHYLAXIS
     Dosage: 1 DOSAGE FORMS;
     Route: 048
     Dates: start: 20110106

REACTIONS (1)
  - SYNCOPE [None]
